FAERS Safety Report 6637916-1 (Version None)
Quarter: 2010Q1

REPORT INFORMATION
  Report Type: 
  Country: None (occurrence: None)
  Receive Date: 20100317
  Receipt Date: 20100310
  Transmission Date: 20100710
  Serious: Yes (Death, Other)
  Sender: FDA-Public Use
  Company Number: US-ABBOTT-10P-163-0625957-00

PATIENT
  Sex: Male

DRUGS (3)
  1. VICODIN [Suspect]
     Indication: PAIN
     Route: 048
     Dates: start: 20100101, end: 20100101
  2. VICODIN [Suspect]
     Indication: LEUKAEMIA
  3. VICODIN [Suspect]
     Indication: MYELODYSPLASTIC SYNDROME

REACTIONS (2)
  - LYMPHOMA [None]
  - PAIN [None]
